FAERS Safety Report 6252445-5 (Version None)
Quarter: 2009Q3

REPORT INFORMATION
  Report Type: 
  Country: None (occurrence: None)
  Receive Date: 20090701
  Receipt Date: 20090623
  Transmission Date: 20100115
  Serious: Yes (Hospitalization)
  Sender: FDA-Public Use
  Company Number: NL-JNJFOC-20090608369

PATIENT
  Sex: Female

DRUGS (8)
  1. REMICADE [Suspect]
     Indication: CROHN'S DISEASE
     Dosage: 100 MG VIAL
     Route: 042
  2. BUSCOPAN [Concomitant]
     Dosage: 1 DF
  3. URSOCHOL [Concomitant]
     Route: 048
  4. ENTOCORT EC [Concomitant]
     Route: 048
  5. ZOPICLON [Concomitant]
     Route: 048
  6. PANTOPRAZOLE SODIUM [Concomitant]
     Route: 048
  7. MESALAZIN [Concomitant]
     Route: 048
  8. TRAMADOL HCL [Concomitant]
     Route: 048

REACTIONS (5)
  - FATIGUE [None]
  - HEADACHE [None]
  - MUSCLE SPASMS [None]
  - PYREXIA [None]
  - VERTIGO [None]
